FAERS Safety Report 18632369 (Version 2)
Quarter: 2021Q1

REPORT INFORMATION
  Report Type: Report from Study
  Country: None (occurrence: US)
  Receive Date: 20201218
  Receipt Date: 20210222
  Transmission Date: 20210419
  Serious: Yes (Hospitalization, Other)
  Sender: FDA-Public Use
  Company Number: US-ABBVIE-20K-163-3696108-00

PATIENT
  Age: 77 Year
  Sex: Male

DRUGS (1)
  1. HUMIRA [Suspect]
     Active Substance: ADALIMUMAB
     Indication: PSORIATIC ARTHROPATHY
     Dosage: CITRATE FREE
     Route: 058
     Dates: end: 2020

REACTIONS (7)
  - Atrial thrombosis [Unknown]
  - Haemoglobin decreased [Recovering/Resolving]
  - Atrial fibrillation [Unknown]
  - Coronary artery bypass [Recovering/Resolving]
  - Oxygen saturation decreased [Unknown]
  - Urinary bladder haemorrhage [Recovering/Resolving]
  - Injury [Unknown]

NARRATIVE: CASE EVENT DATE: 20201012
